FAERS Safety Report 6293228-X (Version None)
Quarter: 2009Q3

REPORT INFORMATION
  Report Type: 
  Country: None (occurrence: None)
  Receive Date: 20090731
  Receipt Date: 20090723
  Transmission Date: 20100115
  Serious: Yes (Hospitalization, Disabling, Other)
  Sender: FDA-Public Use
  Company Number: BR-ELI_LILLY_AND_COMPANY-BR200907005428

PATIENT
  Sex: Female

DRUGS (1)
  1. FORTEO [Suspect]
     Indication: OSTEOPOROSIS
     Dosage: 20 UG, UNKNOWN
     Route: 058
     Dates: start: 20081201, end: 20090401

REACTIONS (6)
  - ABASIA [None]
  - ANAEMIA [None]
  - CHOLECYSTITIS [None]
  - HOSPITALISATION [None]
  - NOSOCOMIAL INFECTION [None]
  - PNEUMONIA [None]
